FAERS Safety Report 7973380-8 (Version None)
Quarter: 2011Q4

REPORT INFORMATION
  Report Type: 
  Country: None (occurrence: None)
  Receive Date: 20111213
  Receipt Date: 20110721
  Transmission Date: 20120403
  Serious: No
  Sender: FDA-Public Use
  Company Number: US-AMGEN-USASP2011037360

PATIENT
  Sex: Female

DRUGS (2)
  1. ARANESP [Suspect]
     Indication: RENAL FAILURE CHRONIC
     Dosage: 300 MUG, Q6MO
  2. ARANESP [Suspect]
     Dosage: 100 MUG, UNK
     Dates: start: 20080101

REACTIONS (6)
  - ANAEMIA [None]
  - DRUG INEFFECTIVE [None]
  - PLATELET COUNT INCREASED [None]
  - CRYING [None]
  - AGITATION [None]
  - ASTHENIA [None]
